FAERS Safety Report 7463959-4 (Version None)
Quarter: 2011Q2

REPORT INFORMATION
  Report Type: 
  Country: None (occurrence: None)
  Receive Date: 20110506
  Receipt Date: 20110421
  Transmission Date: 20111010
  Serious: No
  Sender: FDA-Public Use
  Company Number: US-B.I. PHARMACEUTICALS,INC./RIDGEFIELD-2011-BP-05772BP

PATIENT
  Sex: Female

DRUGS (19)
  1. SIMVASTATIN [Concomitant]
     Indication: BLOOD CHOLESTEROL INCREASED
  2. SPIRIVA [Suspect]
     Indication: CHRONIC OBSTRUCTIVE PULMONARY DISEASE
     Dosage: 18 MCG
     Route: 055
     Dates: start: 20090101
  3. FLUTICASONE PROPIONATE [Concomitant]
     Indication: CHRONIC OBSTRUCTIVE PULMONARY DISEASE
  4. CARVEDILOL [Concomitant]
     Indication: CARDIAC DISORDER
  5. FISH OIL [Concomitant]
     Indication: PROPHYLAXIS
  6. ACETAMINOPHEN [Concomitant]
     Indication: ARTHRITIS
  7. OMEPRAZOLE [Concomitant]
     Indication: ULCER HAEMORRHAGE
  8. VITAMINS [Concomitant]
     Indication: PROPHYLAXIS
  9. CALCIUM [Concomitant]
     Indication: PROPHYLAXIS
  10. POTASSIUM [Concomitant]
     Indication: PROPHYLAXIS
  11. FUROSEMIDE [Concomitant]
     Indication: FLUID RETENTION
  12. LORATADINE [Concomitant]
     Indication: MULTIPLE ALLERGIES
  13. BUDESONIDE [Concomitant]
     Indication: CHRONIC OBSTRUCTIVE PULMONARY DISEASE
  14. MOVE FREE [Concomitant]
     Indication: PROPHYLAXIS
  15. TRICOR [Concomitant]
     Indication: BLOOD CHOLESTEROL INCREASED
  16. DIOVAN [Concomitant]
     Indication: CARDIAC DISORDER
  17. ASPIRIN [Concomitant]
     Indication: PROPHYLAXIS
  18. VITAMIN-MINERAL COMPOUND TAB [Concomitant]
     Indication: MACULAR DEGENERATION
  19. LEVOTHYROXINE SODIUM [Concomitant]
     Indication: HYPOTHYROIDISM

REACTIONS (1)
  - PARAESTHESIA [None]
